FAERS Safety Report 8880997 (Version 1)
Quarter: 2012Q4

REPORT INFORMATION
  Report Type: 
  Country: SE (occurrence: SE)
  Receive Date: 20121101
  Receipt Date: 20121101
  Transmission Date: 20130627
  Serious: Yes (Hospitalization)
  Sender: FDA-Public Use
  Company Number: SE-PFIZER INC-2012267820

PATIENT
  Age: 40 Year
  Sex: Female
  Weight: 80.3 kg

DRUGS (2)
  1. GENOTROPIN [Suspect]
     Dosage: 0.4 mg, 1x/day, 7inj/wk
     Route: 058
     Dates: start: 20030310
  2. MINIRIN ^AVENTIS PHARMA^ [Concomitant]
     Indication: BLOOD ANTIDIURETIC HORMONE DECREASED
     Dosage: UNK
     Dates: start: 19980501

REACTIONS (1)
  - Synovial cyst [Unknown]
